FAERS Safety Report 12280623 (Version 1)
Quarter: 2016Q2

REPORT INFORMATION
  Report Type: Other
  Country: TW (occurrence: TW)
  Receive Date: 20160419
  Receipt Date: 20160419
  Transmission Date: 20160815
  Serious: Yes (Other)
  Sender: FDA-Public Use
  Company Number: TW-LUPIN PHARMACEUTICALS INC.-2016-01416

PATIENT
  Age: 24 Year
  Sex: Male

DRUGS (10)
  1. RIFAMPIN. [Suspect]
     Active Substance: RIFAMPIN
     Indication: TUBERCULOSIS
     Dosage: 600 MG
     Route: 065
     Dates: start: 201402
  2. ISONIAZID. [Concomitant]
     Active Substance: ISONIAZID
     Indication: TUBERCULOSIS
     Dosage: 300 MG
     Route: 065
     Dates: start: 201402
  3. ETHAMBUTOL [Concomitant]
     Active Substance: ETHAMBUTOL HYDROCHLORIDE
     Indication: TUBERCULOSIS
     Dosage: 1200 MG
     Route: 065
     Dates: start: 201402
  4. TACROLIMUS. [Interacting]
     Active Substance: TACROLIMUS
     Dosage: 8 MG
     Route: 065
     Dates: start: 20141204, end: 20141204
  5. TACROLIMUS. [Interacting]
     Active Substance: TACROLIMUS
     Dosage: 4 MG
     Route: 065
     Dates: start: 20141205
  6. TACROLIMUS. [Interacting]
     Active Substance: TACROLIMUS
     Dosage: 6 MG
     Route: 065
     Dates: end: 20141204
  7. MYCOPHENOLATE MOFETIL. [Concomitant]
     Active Substance: MYCOPHENOLATE MOFETIL
     Indication: IMMUNOSUPPRESSANT DRUG THERAPY
     Route: 065
     Dates: start: 201103
  8. PYRAZINAMIDE. [Concomitant]
     Active Substance: PYRAZINAMIDE
     Indication: TUBERCULOSIS
     Dosage: 1500 MG
     Route: 065
     Dates: start: 201402
  9. TACROLIMUS. [Interacting]
     Active Substance: TACROLIMUS
     Indication: IMMUNOSUPPRESSANT DRUG THERAPY
     Route: 065
     Dates: start: 201103
  10. PREDNISOLONE. [Concomitant]
     Active Substance: PREDNISOLONE
     Indication: IMMUNOSUPPRESSANT DRUG THERAPY
     Route: 065
     Dates: start: 201103

REACTIONS (3)
  - Drug interaction [Unknown]
  - Graft loss [Unknown]
  - Transplant rejection [Unknown]
